FAERS Safety Report 26176519 (Version 1)
Quarter: 2025Q4

REPORT INFORMATION
  Report Type: Spontaneous
  Country: EU (occurrence: EU)
  Receive Date: 20251218
  Receipt Date: 20251218
  Transmission Date: 20260118
  Serious: Yes (Hospitalization, Other)
  Sender: NOVO NORDISK
  Company Number: EU-NOVOPROD-1584545

PATIENT
  Sex: Female
  Weight: 73 kg

DRUGS (4)
  1. RYBELSUS [Suspect]
     Active Substance: SEMAGLUTIDE
     Indication: Product used for unknown indication
     Dosage: 3 MG, QD
     Dates: start: 20250705
  2. RYBELSUS [Suspect]
     Active Substance: SEMAGLUTIDE
     Indication: Product used for unknown indication
     Dosage: 7 MG, QD
     Dates: start: 20250828
  3. RYBELSUS [Suspect]
     Active Substance: SEMAGLUTIDE
     Dosage: UNK (DOSE DECREASED)
     Dates: end: 20251103
  4. RYBELSUS [Suspect]
     Active Substance: SEMAGLUTIDE
     Indication: Product used for unknown indication
     Dosage: 14 MG, QD

REACTIONS (2)
  - Tubulointerstitial nephritis [Unknown]
  - Weight decreased [Unknown]
